FAERS Safety Report 8372570 (Version 2)
Quarter: 2012Q4

REPORT INFORMATION
  Report Type: Report from Study
  Country: FR (occurrence: FR)
  Receive Date: 20120131
  Receipt Date: 20121218
  Transmission Date: 20130627
  Serious: Yes (Hospitalization)
  Sender: FDA-Public Use
  Company Number: FR-CELGENEUS-056-21880-12011552

PATIENT
  Age: 51 Year
  Sex: Female
  Weight: 56 kg

DRUGS (3)
  1. REVLIMID [Suspect]
     Indication: MULTIPLE MYELOMA
     Dosage: 10 Milligram
     Route: 048
     Dates: start: 20101007, end: 20110915
  2. ZELITREX [Concomitant]
     Indication: INFECTION PROPHYLAXIS
     Dosage: 1000 Milligram
     Route: 048
  3. AMOXICILLIN [Concomitant]
     Indication: DRUG USE FOR UNKNOWN INDICATION
     Dosage: 1500 Milligram
     Route: 048

REACTIONS (1)
  - Haemarthrosis [Recovered/Resolved]
